FAERS Safety Report 13983069 (Version 1)
Quarter: 2017Q3

REPORT INFORMATION
  Report Type: Spontaneous
  Country: US (occurrence: US)
  Receive Date: 20170918
  Receipt Date: 20170918
  Transmission Date: 20171128
  Serious: Yes (Hospitalization, Other)
  Sender: FDA-Public Use
  Company Number: US-PFIZER INC-2016186507

PATIENT
  Age: 40 Year
  Sex: Female

DRUGS (2)
  1. ETOPOSIDE. [Suspect]
     Active Substance: ETOPOSIDE
     Indication: CHOROID PLEXUS CARCINOMA
     Dosage: 100 MG/M2 (173 MG) ON DAYS 1-5
  2. CARBOPLATIN. [Suspect]
     Active Substance: CARBOPLATIN
     Indication: CHOROID PLEXUS CARCINOMA
     Dosage: 350 MG/M2, (606 MG) ON DAYS 1 AND 2

REACTIONS (4)
  - Neutropenia [Recovered/Resolved]
  - Liver disorder [Recovered/Resolved]
  - Sepsis [Recovered/Resolved]
  - Arrhythmia [Recovered/Resolved]
